FAERS Safety Report 12686687 (Version 1)
Quarter: 2016Q3

REPORT INFORMATION
  Report Type: Spontaneous
  Country: US (occurrence: US)
  Receive Date: 20160825
  Receipt Date: 20160825
  Transmission Date: 20161109
  Serious: No
  Sender: FDA-Public Use
  Company Number: US-JAZZ-2016-US-006790

PATIENT
  Age: 62 Year
  Sex: Female

DRUGS (25)
  1. XYREM [Suspect]
     Active Substance: SODIUM OXYBATE
     Dosage: 3.75 G, BID
     Route: 048
     Dates: start: 201511
  2. TYLENOL [Concomitant]
     Active Substance: ACETAMINOPHEN
  3. JUBLIA [Concomitant]
     Active Substance: EFINACONAZOLE
  4. ROLAIDS [Concomitant]
     Active Substance: CALCIUM CARBONATE\MAGNESIUM HYDROXIDE
  5. MULTIVITAMINS [Concomitant]
     Active Substance: VITAMINS
  6. PREMARIN [Concomitant]
     Active Substance: ESTROGENS, CONJUGATED
  7. GABAPENTIN. [Concomitant]
     Active Substance: GABAPENTIN
  8. B-COMPLEX + VITAMIN C [Concomitant]
  9. XYREM [Suspect]
     Active Substance: SODIUM OXYBATE
     Indication: NARCOLEPSY
     Dosage: 2.25 G, BID
     Route: 048
     Dates: start: 201510, end: 201510
  10. ALLEGRA-D [Concomitant]
     Active Substance: FEXOFENADINE\PSEUDOEPHEDRINE
  11. LIDOCAINE. [Concomitant]
     Active Substance: LIDOCAINE
  12. CORTISONE [Concomitant]
     Active Substance: CORTISONE\HYDROCORTISONE
  13. ALLEGRA ALLERGY [Concomitant]
     Active Substance: FEXOFENADINE HYDROCHLORIDE
  14. NAPROXEN SODIUM. [Concomitant]
     Active Substance: NAPROXEN SODIUM
  15. BENADRYL ALLERGY [Concomitant]
     Active Substance: DIPHENHYDRAMINE HYDROCHLORIDE
  16. LORATADINE. [Concomitant]
     Active Substance: LORATADINE
  17. NASONEX [Concomitant]
     Active Substance: MOMETASONE FUROATE
  18. AMLODIPINE BESYLATE. [Concomitant]
     Active Substance: AMLODIPINE BESYLATE
  19. ZYRTEC [Concomitant]
     Active Substance: CETIRIZINE HYDROCHLORIDE
  20. FERROUS SULFATE. [Concomitant]
     Active Substance: FERROUS SULFATE
  21. TUMS EX [Concomitant]
     Active Substance: CALCIUM CARBONATE
  22. XYREM [Suspect]
     Active Substance: SODIUM OXYBATE
     Indication: CATAPLEXY
     Dosage: 3 G, BID
     Route: 048
     Dates: start: 201510, end: 201511
  23. BIOTIN [Concomitant]
     Active Substance: BIOTIN
  24. IBUPROFEN. [Concomitant]
     Active Substance: IBUPROFEN
  25. REQUIP [Concomitant]
     Active Substance: ROPINIROLE HYDROCHLORIDE

REACTIONS (6)
  - Weight decreased [Unknown]
  - Moaning [Unknown]
  - Headache [Recovered/Resolved]
  - Sleep terror [Unknown]
  - Hypertension [Recovering/Resolving]
  - Abnormal sleep-related event [Unknown]

NARRATIVE: CASE EVENT DATE: 201510
